FAERS Safety Report 7300919-8 (Version None)
Quarter: 2011Q1

REPORT INFORMATION
  Report Type: 
  Country: None (occurrence: None)
  Receive Date: 20110218
  Receipt Date: 20110126
  Transmission Date: 20110831
  Serious: No
  Sender: FDA-Public Use
  Company Number: US-B.I. PHARMACEUTICALS,INC./RIDGEFIELD-2010-BP-11662BP

PATIENT
  Sex: Male

DRUGS (10)
  1. ALBUTEROL [Concomitant]
     Indication: EMPHYSEMA
  2. VENTOLIN HFA [Concomitant]
     Indication: DYSPNOEA
     Route: 048
  3. CARVEDILOL [Concomitant]
     Indication: HYPERTENSION
  4. METOPROLOL [Concomitant]
     Indication: HYPERTENSION
  5. LISINOPRIL [Concomitant]
     Indication: HYPERTENSION
  6. METFORMIN [Concomitant]
     Indication: DIABETES MELLITUS
     Route: 048
  7. SPIRIVA [Suspect]
     Indication: DYSPNOEA
     Dosage: 18 MCG
     Route: 055
     Dates: start: 20090101
  8. PLAVIX [Concomitant]
     Indication: CARDIAC DISORDER
     Route: 048
  9. LOVASTATIN [Concomitant]
     Indication: BLOOD CHOLESTEROL INCREASED
     Route: 048
  10. SPIRIVA [Suspect]
     Indication: EMPHYSEMA

REACTIONS (1)
  - DYSPNOEA [None]
